FAERS Safety Report 26194465 (Version 1)
Quarter: 2025Q4

REPORT INFORMATION
  Report Type: Report from Study
  Country: US (occurrence: US)
  Receive Date: 20251224
  Receipt Date: 20251224
  Transmission Date: 20260118
  Serious: Yes (Hospitalization, Other)
  Sender: BRISTOL-MYERS SQUIBB COMPANY
  Company Number: US-BRISTOL-MYERS SQUIBB COMPANY-2025-171539

PATIENT
  Age: 71 Year
  Sex: Female

DRUGS (2)
  1. BREYANZI [Suspect]
     Active Substance: LISOCABTAGENE MARALEUCEL
     Indication: B-cell lymphoma recurrent
     Route: 042
     Dates: start: 20251119
  2. BREYANZI [Suspect]
     Active Substance: LISOCABTAGENE MARALEUCEL
     Indication: B-cell lymphoma refractory

REACTIONS (7)
  - Confusional state [Unknown]
  - Fall [Unknown]
  - Immune effector cell-associated neurotoxicity syndrome [Unknown]
  - Asthenia [Unknown]
  - Mobility decreased [Unknown]
  - Hip fracture [Unknown]
  - Seizure [Unknown]
